FAERS Safety Report 5605662-9 (Version None)
Quarter: 2008Q1

REPORT INFORMATION
  Report Type: 
  Country: None (occurrence: None)
  Receive Date: 20080125
  Receipt Date: 20080120
  Transmission Date: 20080703
  Serious: Yes (Other)
  Sender: FDA-Public Use
  Company Number: 2008S1000530

PATIENT
  Age: 64 Year
  Sex: Male
  Weight: 81.6475 kg

DRUGS (5)
  1. FLEET PREP KIT 1 [Suspect]
     Indication: COLONOSCOPY
     Dosage: 10 MG; X1; RTL
     Route: 054
     Dates: start: 20080117, end: 20080118
  2. MULTI-VITAMINS [Concomitant]
  3. FISH OIL [Concomitant]
  4. CALCIUM GLUCONATE [Concomitant]
  5. ASPIRIN [Concomitant]

REACTIONS (2)
  - HYPOMAGNESAEMIA [None]
  - TACHYCARDIA [None]
